FAERS Safety Report 11820778 (Version 1)
Quarter: 2015Q4

REPORT INFORMATION
  Report Type: Spontaneous
  Country: US (occurrence: US)
  Receive Date: 20151210
  Receipt Date: 20151210
  Transmission Date: 20160305
  Serious: No
  Sender: FDA-Public Use
  Company Number: US-JNJFOC-20140806196

PATIENT
  Age: 58 Year
  Sex: Male
  Weight: 120 kg

DRUGS (6)
  1. IMMUNOGLOBULIN [Concomitant]
     Active Substance: HUMAN IMMUNOGLOBULIN G
     Indication: BLOOD IMMUNOGLOBULIN G DECREASED
     Dosage: MONTHLY
     Route: 042
     Dates: end: 201405
  2. OXYCODONE [Concomitant]
     Active Substance: OXYCODONE
     Indication: PAIN
  3. MULTIVITAMINS [Concomitant]
     Active Substance: VITAMINS
     Route: 048
  4. IMMUNOGLOBULIN [Concomitant]
     Active Substance: HUMAN IMMUNOGLOBULIN G
     Indication: HYPOGAMMAGLOBULINAEMIA
     Dosage: MONTHLY
     Route: 042
     Dates: end: 201405
  5. IMBRUVICA [Suspect]
     Active Substance: IBRUTINIB
     Indication: CHRONIC LYMPHOCYTIC LEUKAEMIA
     Route: 048
     Dates: start: 20140207
  6. ECONAZOLE [Concomitant]
     Active Substance: ECONAZOLE
     Indication: TINEA PEDIS

REACTIONS (6)
  - Sleep apnoea syndrome [Unknown]
  - Contusion [Unknown]
  - Diarrhoea [Unknown]
  - Thrombocytopenia [Unknown]
  - Epistaxis [Unknown]
  - Acute sinusitis [Recovered/Resolved]

NARRATIVE: CASE EVENT DATE: 2014
